FAERS Safety Report 4628291-2 (Version None)
Quarter: 2005Q2

REPORT INFORMATION
  Report Type: 
  Country: None (occurrence: None)
  Receive Date: 20050401
  Receipt Date: 20050318
  Transmission Date: 20051028
  Serious: Yes (Other)
  Sender: FDA-Public Use
  Company Number: 0500016EN0020P

PATIENT
  Age: 4 Year
  Sex: Male

DRUGS (11)
  1. ONCASPAR [Suspect]
     Indication: ACUTE LYMPHOCYTIC LEUKAEMIA
     Dosage: 23525 IU/M2 IM
     Route: 030
     Dates: start: 20001228, end: 20020413
  2. VINCRISTINE [Suspect]
     Indication: ACUTE LYMPHOCYTIC LEUKAEMIA
     Dosage: 31.67 MG/M2
     Dates: start: 20001228, end: 20020413
  3. CYTOSAR [Suspect]
     Indication: ACUTE LYMPHOCYTIC LEUKAEMIA
     Dosage: 2260 MG/M2
     Dates: start: 20001228, end: 20020413
  4. MERCAPTOPURINE [Suspect]
     Indication: ACUTE LYMPHOCYTIC LEUKAEMIA
     Dosage: 475000 MG/M2
     Dates: start: 20001228, end: 20020413
  5. CYTOXAN [Suspect]
     Indication: ACUTE LYMPHOCYTIC LEUKAEMIA
     Dosage: 2290 MG/M2
     Dates: start: 20001228, end: 20020413
  6. METHOTREXATE [Suspect]
     Indication: ACUTE LYMPHOCYTIC LEUKAEMIA
     Dosage: 243 MG/M2 IT; 58 MG/M2 PO; 1054 MG/M2 IV
     Route: 038
     Dates: start: 20001228, end: 20020413
  7. DAUNOMUCIN [Suspect]
     Indication: ACUTE LYMPHOCYTIC LEUKAEMIA
     Dosage: 475000 MG/M2
     Dates: start: 20001228, end: 20020413
  8. DOXORUBICIN HCL [Suspect]
     Indication: ACUTE LYMPHOCYTIC LEUKAEMIA
     Dosage: 147 MG/M2
     Dates: start: 20001228, end: 20020413
  9. THIOGUANINE [Suspect]
     Indication: ACUTE LYMPHOCYTIC LEUKAEMIA
     Dosage: 800 MG/M2
     Dates: start: 20001228, end: 20020413
  10. DECADRON [Suspect]
     Indication: ACUTE LYMPHOCYTIC LEUKAEMIA
     Dosage: 238 MG/M2
     Dates: start: 20001228, end: 20020413
  11. G-CSF [Concomitant]

REACTIONS (1)
  - ACUTE MYELOID LEUKAEMIA [None]
